FAERS Safety Report 8586963-1 (Version None)
Quarter: 2012Q3

REPORT INFORMATION
  Report Type: 
  Country: None (occurrence: None)
  Receive Date: 20120810
  Receipt Date: 20120806
  Transmission Date: 20120928
  Serious: Yes (Hospitalization)
  Sender: FDA-Public Use
  Company Number: US-PFIZER INC-2012191611

PATIENT
  Age: 61 Year
  Sex: Female
  Weight: 100 kg

DRUGS (1)
  1. LATANOPROST [Suspect]
     Dosage: ONE DROP IN EACH EYE, 1X/DAY
     Route: 047

REACTIONS (2)
  - KIDNEY INFECTION [None]
  - DRUG INTOLERANCE [None]
